FAERS Safety Report 6754827-1 (Version None)
Quarter: 2010Q2

REPORT INFORMATION
  Report Type: 
  Country: None (occurrence: None)
  Receive Date: 20100603
  Receipt Date: 20100526
  Transmission Date: 20101027
  Serious: Yes (Hospitalization)
  Sender: FDA-Public Use
  Company Number: FR-GENENTECH-302394

PATIENT
  Sex: Female
  Weight: 50 kg

DRUGS (8)
  1. RITUXIMAB [Suspect]
     Indication: MANTLE CELL LYMPHOMA
     Dosage: 500 MG, QAM
     Route: 041
     Dates: start: 20100118, end: 20100118
  2. RITUXIMAB [Suspect]
     Dosage: UNK
     Route: 041
     Dates: start: 20100325
  3. CYTARABINE [Suspect]
     Indication: MANTLE CELL LYMPHOMA
     Dosage: 3100 MG, QAM
     Route: 041
     Dates: start: 20100115, end: 20100116
  4. CYTARABINE [Suspect]
     Dosage: UNK
     Route: 041
     Dates: start: 20100325, end: 20100326
  5. CARBOPLATIN [Suspect]
     Indication: MANTLE CELL LYMPHOMA
     Dosage: 450 MG, QAM
     Route: 041
     Dates: start: 20100115, end: 20100115
  6. CARBOPLATIN [Suspect]
     Dosage: UNK
     Route: 041
     Dates: start: 20100325
  7. DEXAMETHASONE [Suspect]
     Indication: MANTLE CELL LYMPHOMA
     Dosage: 40 MG, QAM
     Route: 041
     Dates: start: 20100115, end: 20100116
  8. DEXAMETHASONE [Suspect]
     Dosage: UNK
     Route: 041
     Dates: end: 20100328

REACTIONS (1)
  - CEREBELLAR SYNDROME [None]
